FAERS Safety Report 9393183 (Version 3)
Quarter: 2013Q4

REPORT INFORMATION
  Report Type: Spontaneous
  Country: US (occurrence: US)
  Receive Date: 20130710
  Receipt Date: 20131122
  Transmission Date: 20140711
  Serious: Yes (Hospitalization)
  Sender: FDA-Public Use
  Company Number: US-TEVA-418035USA

PATIENT
  Age: 81 Year
  Sex: Male
  Weight: 77.18 kg

DRUGS (5)
  1. PROAIR HFA [Suspect]
     Indication: BRONCHITIS CHRONIC
     Route: 055
     Dates: start: 201212
  2. SPIRIVA [Concomitant]
     Indication: BRONCHITIS
     Dosage: QD
     Dates: start: 2012
  3. ATENOLOL [Concomitant]
  4. HYDROCHLOROTHIAZIDE [Concomitant]
     Dosage: QD
  5. ADVAIR [Concomitant]

REACTIONS (6)
  - Adverse event [Unknown]
  - Contusion [Recovered/Resolved]
  - Contusion [Recovered/Resolved]
  - Contusion [Recovered/Resolved]
  - Urticaria [Not Recovered/Not Resolved]
  - Anaemia [Unknown]
